FAERS Safety Report 20863825 (Version 2)
Quarter: 2022Q2

REPORT INFORMATION
  Report Type: Report from Study
  Country: GB (occurrence: GB)
  Receive Date: 20220523
  Receipt Date: 20220526
  Transmission Date: 20220720
  Serious: Yes (Other)
  Sender: FDA-Public Use
  Company Number: GB-NOVARTISPH-NVSC2022GB115581

PATIENT
  Sex: Male

DRUGS (1)
  1. OMNITROPE [Suspect]
     Active Substance: SOMATROPIN
     Indication: Product used for unknown indication
     Dosage: 0.2 MG (AS DIRECTED), QD
     Route: 065
     Dates: start: 20190225

REACTIONS (4)
  - Brain neoplasm [Unknown]
  - Insomnia [Unknown]
  - Stress [Unknown]
  - Product dose omission issue [Unknown]
